FAERS Safety Report 9128211 (Version 1)
Quarter: 2013Q1

REPORT INFORMATION
  Report Type: Report from Study
  Country: NO (occurrence: DK)
  Receive Date: 20130125
  Receipt Date: 20130125
  Transmission Date: 20140127
  Serious: Yes (Hospitalization)
  Sender: FDA-Public Use
  Company Number: DK-BAXTER-2013BAX002600

PATIENT
  Age: 68 Year
  Sex: Male
  Weight: 81 kg

DRUGS (12)
  1. SENDOXAN [Suspect]
     Indication: DIFFUSE LARGE B-CELL LYMPHOMA
     Route: 042
     Dates: start: 20110822
  2. SENDOXAN [Suspect]
     Route: 042
     Dates: start: 20110905
  3. RITUXIMAB [Suspect]
     Indication: DIFFUSE LARGE B-CELL LYMPHOMA
     Route: 042
     Dates: start: 20110822
  4. RITUXIMAB [Suspect]
     Route: 042
     Dates: start: 20110905
  5. VINCRISTINE [Suspect]
     Indication: DIFFUSE LARGE B-CELL LYMPHOMA
     Route: 042
     Dates: start: 20110822
  6. VINCRISTINE [Suspect]
     Route: 042
     Dates: start: 20110905
  7. G-CSF [Suspect]
     Indication: DIFFUSE LARGE B-CELL LYMPHOMA
     Route: 042
     Dates: start: 20110823
  8. G-CSF [Suspect]
     Route: 042
     Dates: start: 20110906
  9. PREDNISONE [Suspect]
     Indication: DIFFUSE LARGE B-CELL LYMPHOMA
     Route: 048
     Dates: start: 20110822
  10. PREDNISONE [Suspect]
     Route: 048
     Dates: start: 20110905
  11. DOXORUBICIN [Suspect]
     Indication: DIFFUSE LARGE B-CELL LYMPHOMA
     Route: 042
     Dates: start: 20110822
  12. DOXORUBICIN [Suspect]
     Route: 042
     Dates: start: 20110905

REACTIONS (2)
  - Klebsiella infection [Recovered/Resolved]
  - Deep vein thrombosis [Not Recovered/Not Resolved]
